FAERS Safety Report 4847264-8 (Version None)
Quarter: 2005Q4

REPORT INFORMATION
  Report Type: 
  Country: None (occurrence: None)
  Receive Date: 20051207
  Receipt Date: 20051121
  Transmission Date: 20060501
  Serious: Yes (Hospitalization, Disabling)
  Sender: FDA-Public Use
  Company Number: DE-GLAXOSMITHKLINE-D0048077A

PATIENT
  Age: 32 Year
  Sex: Male

DRUGS (2)
  1. MALARONE [Suspect]
     Indication: MALARIA PROPHYLAXIS
     Route: 048
     Dates: start: 20050301, end: 20050301
  2. MALARONE [Suspect]
     Route: 048
     Dates: start: 20050901, end: 20050901

REACTIONS (4)
  - BLOOD CHOLINESTERASE INCREASED [None]
  - HEPATIC FIBROSIS [None]
  - HEPATOTOXICITY [None]
  - TRANSAMINASES INCREASED [None]
